FAERS Safety Report 5776578-2 (Version None)
Quarter: 2008Q2

REPORT INFORMATION
  Report Type: 
  Country: None (occurrence: None)
  Receive Date: 20080618
  Receipt Date: 20080607
  Transmission Date: 20081010
  Serious: Yes (Other)
  Sender: FDA-Public Use
  Company Number: AU-NOVOPROD-276393

PATIENT
  Age: 8 Year
  Sex: Male

DRUGS (2)
  1. NOVORAPID PENFILL [Suspect]
     Indication: TYPE 1 DIABETES MELLITUS
     Route: 058
     Dates: start: 20060101
  2. INSULIN LISPRO [Concomitant]
     Indication: TYPE 1 DIABETES MELLITUS

REACTIONS (1)
  - LIPOATROPHY [None]
